FAERS Safety Report 6882519-7 (Version None)
Quarter: 2010Q3

REPORT INFORMATION
  Report Type: 
  Country: None (occurrence: None)
  Receive Date: 20100702
  Receipt Date: 20100517
  Transmission Date: 20110219
  Serious: Yes (Hospitalization)
  Sender: FDA-Public Use
  Company Number: 233389USA

PATIENT
  Age: 60 Year
  Sex: Female

DRUGS (4)
  1. CARVEDILOL [Suspect]
     Indication: HYPERTENSION
     Dosage: TWICE/DAY (3.125 MG), ORAL
     Route: 048
     Dates: start: 20100404, end: 20100412
  2. METFORMIN HCL [Concomitant]
  3. ROSUVASTATIN [Concomitant]
  4. SALBUTAMOL [Concomitant]

REACTIONS (2)
  - CHEST PAIN [None]
  - HYPERTENSION [None]
